FAERS Safety Report 6532806-7 (Version None)
Quarter: 2010Q1

REPORT INFORMATION
  Report Type: 
  Country: None (occurrence: None)
  Receive Date: 20100111
  Receipt Date: 20100107
  Transmission Date: 20100710
  Serious: Yes (Death)
  Sender: FDA-Public Use
  Company Number: PHHY2009CA51839

PATIENT
  Sex: Female

DRUGS (10)
  1. ACLASTA [Suspect]
     Indication: OSTEOPOROSIS
     Dosage: 5 MG, ONCE/SINGLE
     Dates: start: 20081020
  2. RAMIPRIL [Concomitant]
  3. DIAZEPAM [Concomitant]
  4. TYLENOL (CAPLET) [Concomitant]
  5. BISACODYL [Concomitant]
  6. COFLAX [Concomitant]
  7. TRAMADOL HYDROCHLORIDE [Concomitant]
  8. VITAMIN D [Concomitant]
  9. AMITRIPTYLINE [Concomitant]
  10. SPIRIVC [Concomitant]

REACTIONS (1)
  - AORTIC ANEURYSM REPAIR [None]
